FAERS Safety Report 21359862 (Version 5)
Quarter: 2023Q2

REPORT INFORMATION
  Report Type: Spontaneous
  Country: US (occurrence: US)
  Receive Date: 20220921
  Receipt Date: 20230516
  Transmission Date: 20230722
  Serious: Yes (Other)
  Sender: FDA-Public Use
  Company Number: US-PFIZER INC-202201176042

PATIENT
  Age: 74 Year
  Sex: Male

DRUGS (2)
  1. VYNDAMAX [Suspect]
     Active Substance: TAFAMIDIS
     Indication: Cardiac amyloidosis
     Dosage: 61 MG
  2. VYNDAMAX [Suspect]
     Active Substance: TAFAMIDIS
     Dosage: UNK

REACTIONS (8)
  - Cardiac failure [Unknown]
  - Abdominal discomfort [Unknown]
  - Diarrhoea [Unknown]
  - Rash [Unknown]
  - Chest discomfort [Unknown]
  - Nipple disorder [Unknown]
  - Nipple pain [Unknown]
  - Hypoacusis [Unknown]
